FAERS Safety Report 22529169 (Version 2)
Quarter: 2025Q2

REPORT INFORMATION
  Report Type: Spontaneous
  Country: IN (occurrence: IN)
  Receive Date: 20230607
  Receipt Date: 20250421
  Transmission Date: 20250717
  Serious: Yes (Death, Other)
  Sender: NOVARTIS
  Company Number: IN-002147023-NVSC2023IN128258

PATIENT
  Sex: Female

DRUGS (1)
  1. GLIVEC [Suspect]
     Active Substance: IMATINIB MESYLATE
     Indication: Chronic myeloid leukaemia
     Route: 065

REACTIONS (3)
  - Death [Fatal]
  - Breast cancer [Unknown]
  - Second primary malignancy [Unknown]

NARRATIVE: CASE EVENT DATE: 20180101
